FAERS Safety Report 4854394-3 (Version None)
Quarter: 2005Q4

REPORT INFORMATION
  Report Type: 
  Country: None (occurrence: None)
  Receive Date: 20051213
  Receipt Date: 20051128
  Transmission Date: 20060501
  Serious: Yes (Hospitalization)
  Sender: FDA-Public Use
  Company Number: USA-2005-0021828

PATIENT
  Age: 28 Year
  Sex: Male

DRUGS (12)
  1. CEFDITOREN PIVOXIL (SIMILAR TO NDA 21-222)(CEFDITOREN PIVOXIL) OTHER [Suspect]
     Indication: NASOPHARYNGITIS
     Dosage: 300 MG ORAL
     Route: 048
     Dates: start: 20050606, end: 20050608
  2. PABRON S (SALICYLAMIDE, ACETAMINOPHEN, ANHYDROUS CAFFEINE, ETC) [Suspect]
     Indication: NASOPHARYNGITIS
     Dosage: 1 DF ORAL
     Route: 048
     Dates: start: 20050602, end: 20050602
  3. PL GRANULE (NON-ANTIPYRINE COLD DRUG) [Suspect]
     Indication: NASOPHARYNGITIS
     Dosage: 1 GRAM ORAL
     Route: 048
     Dates: start: 20050602
  4. PELEX (CHLORPHENAMINE MALEATE, SALICYLAMIDE) [Suspect]
     Indication: NASOPHARYNGITIS
     Dosage: 3 GRAM DAILY ORAL
     Route: 048
     Dates: start: 20050606, end: 20050806
  5. P MAGEN (ALUMINIUM SILICATE, CALCIUM CARBONATE, DIASTASE, HERBAL EXTRA [Suspect]
     Indication: NASOPHARYNGITIS
     Dosage: 3 GRAM DAILY ORAL
     Route: 048
     Dates: start: 20050606, end: 20050608
  6. LOXONIN (LOXOPROFEN SODIUM) [Suspect]
     Indication: NASOPHARYNGITIS
     Dosage: 180 MG ORAL
     Route: 048
     Dates: start: 20050606, end: 20050608
  7. BANAN [Suspect]
     Indication: NASOPHARYNGITIS
     Dosage: 100 MG ORAL
     Route: 048
     Dates: start: 20050608, end: 20050612
  8. SOLETON (ZALTOPROFEN) [Suspect]
     Indication: NASOPHARYNGITIS
     Dosage: 80 MG ORAL
     Route: 048
     Dates: start: 20050608, end: 20050612
  9. MEQUITAZINE (MEQUITAZINE) [Suspect]
     Indication: NASOPHARYNGITIS
     Dosage: 4 MG ORAL
     Route: 048
     Dates: start: 20050608, end: 20050612
  10. BIFUROXIN (RIBOFLAVIN SODIUM PHOSPHATE, PYRIDOXINE HYDROCHLORIDE) [Suspect]
     Indication: NASOPHARYNGITIS
     Dosage: 2 DF ORAL
     Route: 048
     Dates: start: 20050608, end: 20050612
  11. AZUNOL (SODIUM GUALENATE) [Concomitant]
  12. DEXALTIN [Concomitant]

REACTIONS (1)
  - STEVENS-JOHNSON SYNDROME [None]
